FAERS Safety Report 14674699 (Version 1)
Quarter: 2018Q1

REPORT INFORMATION
  Report Type: Spontaneous
  Country: US (occurrence: US)
  Receive Date: 20180323
  Receipt Date: 20180323
  Transmission Date: 20180509
  Serious: No
  Sender: FDA-Public Use
  Company Number: US-009507513-1803USA009714

PATIENT
  Sex: Male

DRUGS (1)
  1. BRIDION [Suspect]
     Active Substance: SUGAMMADEX
     Dosage: 4 MG, UNK
     Route: 042

REACTIONS (3)
  - Wheezing [Recovered/Resolved]
  - Bronchospasm [Recovered/Resolved]
  - Stridor [Recovered/Resolved]
